FAERS Safety Report 17446099 (Version 1)
Quarter: 2020Q1

REPORT INFORMATION
  Report Type: Spontaneous
  Country: CN (occurrence: CN)
  Receive Date: 20200221
  Receipt Date: 20200221
  Transmission Date: 20200409
  Serious: Yes (Hospitalization)
  Sender: FDA-Public Use
  Company Number: CN-BAXTER-2020BAX003627

PATIENT
  Age: 14 Year
  Sex: Male
  Weight: 85 kg

DRUGS (1)
  1. 20% MANNITOL INJECTION [Suspect]
     Active Substance: MANNITOL
     Indication: POST PROCEDURAL SWELLING
     Route: 041
     Dates: start: 20200118, end: 20200118

REACTIONS (3)
  - Muscle rigidity [Recovering/Resolving]
  - Convulsions local [Recovering/Resolving]
  - Reduced facial expression [Recovering/Resolving]

NARRATIVE: CASE EVENT DATE: 20200119
